FAERS Safety Report 8555998-7 (Version None)
Quarter: 2012Q3

REPORT INFORMATION
  Report Type: 
  Country: None (occurrence: None)
  Receive Date: 20120801
  Receipt Date: 20120723
  Transmission Date: 20120928
  Serious: Yes (Other)
  Sender: FDA-Public Use
  Company Number: BR-AMGEN-BRASP2012045199

PATIENT
  Age: 26 Year
  Sex: Male
  Weight: 67 kg

DRUGS (4)
  1. MESALAMINE [Concomitant]
     Dosage: UNK
  2. ENBREL [Suspect]
     Dosage: UNKNOWN DOSAGE, EVERY 15 DAYS
     Route: 058
     Dates: start: 20120401
  3. ENBREL [Suspect]
     Indication: RHEUMATOID ARTHRITIS
     Dosage: 50 MG, 1X/WEEK
     Route: 058
     Dates: start: 20110201, end: 20120301
  4. IMURAN [Concomitant]
     Dosage: UNK

REACTIONS (2)
  - IMMUNODEFICIENCY [None]
  - FURUNCLE [None]
